FAERS Safety Report 25222163 (Version 1)
Quarter: 2025Q2

REPORT INFORMATION
  Report Type: Spontaneous
  Country: GB (occurrence: GB)
  Receive Date: 20250421
  Receipt Date: 20250421
  Transmission Date: 20250717
  Serious: Yes (Other)
  Sender: PFIZER
  Company Number: GB-MHRA-TPP60288151C6072074YC1744705559465

PATIENT
  Age: 64 Year
  Sex: Male
  Weight: 93 kg

DRUGS (9)
  1. METHYLPREDNISOLONE [Suspect]
     Active Substance: METHYLPREDNISOLONE
     Indication: Ill-defined disorder
     Dates: start: 20250415
  2. COCODAMOL [Concomitant]
     Active Substance: ACETAMINOPHEN\CODEINE PHOSPHATE
     Indication: Ill-defined disorder
     Route: 048
     Dates: start: 20250127, end: 20250224
  3. BISOPROLOL [Concomitant]
     Active Substance: BISOPROLOL
     Indication: Ill-defined disorder
     Dosage: 1 DF, 1X/DAY
     Route: 048
     Dates: start: 20241105
  4. CITALOPRAM [Concomitant]
     Active Substance: CITALOPRAM
     Indication: Ill-defined disorder
     Dosage: 1 DF, 1X/DAY
     Route: 048
     Dates: start: 20240424
  5. IBUPROFEN [Concomitant]
     Active Substance: IBUPROFEN
     Indication: Pain
     Route: 061
     Dates: start: 20240627
  6. PREGABALIN [Concomitant]
     Active Substance: PREGABALIN
     Indication: Ill-defined disorder
     Dosage: 1 DF, 2X/DAY
     Route: 048
     Dates: start: 20241104
  7. AMLODIPINE [Concomitant]
     Active Substance: AMLODIPINE BESYLATE
     Indication: Ill-defined disorder
     Dosage: 1 DF, 1X/DAY
     Route: 048
     Dates: start: 20241121
  8. NEFOPAM [Concomitant]
     Active Substance: NEFOPAM
     Indication: Ill-defined disorder
     Dosage: 2 DF, 3X/DAY (FREQ:8 H)
     Route: 048
     Dates: start: 20241217
  9. OMEPRAZOLE [Concomitant]
     Active Substance: OMEPRAZOLE
     Indication: Gastrooesophageal reflux disease
     Dosage: 1 DF, 2X/DAY (FREQ:12 H; TO ALLOW STOMACH T.)
     Route: 048
     Dates: start: 20250109

REACTIONS (1)
  - Choroidal dystrophy [Recovering/Resolving]

NARRATIVE: CASE EVENT DATE: 20250415
